FAERS Safety Report 6590172-5 (Version None)
Quarter: 2010Q1

REPORT INFORMATION
  Report Type: 
  Country: None (occurrence: None)
  Receive Date: 20100219
  Receipt Date: 20100213
  Transmission Date: 20100710
  Serious: Yes (Hospitalization)
  Sender: FDA-Public Use
  Company Number: US-RB-000091-10

PATIENT
  Age: 59 Year
  Sex: Female

DRUGS (1)
  1. SUBOXONE [Suspect]
     Indication: DRUG USE FOR UNKNOWN INDICATION
     Dosage: UNKNOWN DOSING INFORMATION
     Route: 060

REACTIONS (5)
  - ASTHMA [None]
  - DIZZINESS [None]
  - DYSPNOEA [None]
  - OXYGEN SATURATION DECREASED [None]
  - SOMNOLENCE [None]
